FAERS Safety Report 6491285-9 (Version None)
Quarter: 2009Q4

REPORT INFORMATION
  Report Type: 
  Country: None (occurrence: None)
  Receive Date: 20091211
  Receipt Date: 20091203
  Transmission Date: 20100525
  Serious: Yes (Other)
  Sender: FDA-Public Use
  Company Number: PHHY2009BR35649

PATIENT
  Sex: Male
  Weight: 60 kg

DRUGS (3)
  1. SANDOSTATIN LAR [Suspect]
     Indication: ACROMEGALY
     Dosage: 20 MG, QMO
     Dates: start: 20081001, end: 20090501
  2. SANDOSTATIN LAR [Suspect]
     Dosage: 20 MG, QMO
     Dates: end: 20091014
  3. ARADOIS [Concomitant]
     Indication: HYPERTENSION
     Dosage: 50 MG, BID
     Route: 048

REACTIONS (18)
  - ACROMEGALY [None]
  - ACTIVITIES OF DAILY LIVING IMPAIRED [None]
  - ANXIETY [None]
  - BACK PAIN [None]
  - BLOOD GROWTH HORMONE INCREASED [None]
  - DEPRESSION [None]
  - DRY SKIN [None]
  - DYSPHONIA [None]
  - EYE SWELLING [None]
  - FATIGUE [None]
  - HAIR DISORDER [None]
  - INSULIN-LIKE GROWTH FACTOR INCREASED [None]
  - OEDEMA [None]
  - OEDEMA PERIPHERAL [None]
  - PAIN [None]
  - PAIN IN EXTREMITY [None]
  - SWELLING FACE [None]
  - WEIGHT INCREASED [None]
